FAERS Safety Report 4309132-X (Version None)
Quarter: 2004Q1

REPORT INFORMATION
  Report Type: 
  Country: None (occurrence: None)
  Receive Date: 20040227
  Receipt Date: 20040216
  Transmission Date: 20041129
  Serious: No
  Sender: FDA-Public Use
  Company Number: 04P-130-0249598-00

PATIENT
  Age: 3 Year
  Sex: Female

DRUGS (2)
  1. KALETRA [Suspect]
     Indication: HIV INFECTION
     Dosage: 18 ML, SINGLE DOSE, PER ORAL
     Route: 048
     Dates: start: 20040203, end: 20040203
  2. KALETRA [Suspect]
     Indication: HIV INFECTION
     Dosage: 18 ML, SINGLE DOSE, PER ORAL
     Route: 048
     Dates: start: 20040205

REACTIONS (5)
  - ABNORMAL BEHAVIOUR [None]
  - EPISTAXIS [None]
  - FEAR [None]
  - MEDICATION ERROR [None]
  - OVERDOSE [None]
